FAERS Safety Report 5636177-X (Version None)
Quarter: 2008Q1

REPORT INFORMATION
  Report Type: 
  Country: None (occurrence: None)
  Receive Date: 20080220
  Receipt Date: 20080205
  Transmission Date: 20080703
  Serious: Yes (Other)
  Sender: FDA-Public Use
  Company Number: S08-UKI-00589-01

PATIENT
  Sex: Female

DRUGS (2)
  1. ESCITALOPRAM [Suspect]
     Dosage: 40 MG QD PO
     Route: 048
  2. AMITRIPTYLINE HCL [Concomitant]

REACTIONS (2)
  - EJECTION FRACTION DECREASED [None]
  - OVERDOSE [None]
